FAERS Safety Report 8302487 (Version 4)
Quarter: 2014Q1

REPORT INFORMATION
  Report Type: Spontaneous
  Country: US (occurrence: US)
  Receive Date: 20111220
  Receipt Date: 20140207
  Transmission Date: 20141002
  Serious: Yes (Other)
  Sender: FDA-Public Use
  Company Number: US-ROCHE-1022842

PATIENT
  Age: 37 Year
  Sex: Male
  Weight: 90.8 kg

DRUGS (3)
  1. ACCUTANE [Suspect]
     Indication: ACNE
     Route: 065
     Dates: start: 1985
  2. ACCUTANE [Suspect]
     Route: 065
     Dates: start: 2001
  3. VITAMIN E [Concomitant]

REACTIONS (8)
  - Colitis ulcerative [Unknown]
  - Irritable bowel syndrome [Unknown]
  - Gastrointestinal ulcer [Unknown]
  - Emotional distress [Unknown]
  - Schizophrenia [Unknown]
  - Depression [Unknown]
  - Suicidal ideation [Unknown]
  - Suicide attempt [Unknown]
